FAERS Safety Report 20153032 (Version 2)
Quarter: 2022Q1

REPORT INFORMATION
  Report Type: Spontaneous
  Country: SE (occurrence: SE)
  Receive Date: 20211206
  Receipt Date: 20220224
  Transmission Date: 20220424
  Serious: Yes (Hospitalization, Disabling)
  Sender: FDA-Public Use
  Company Number: SE-PFIZER INC-202101709362

PATIENT
  Age: 56 Year
  Sex: Female

DRUGS (10)
  1. ASPIRIN [Suspect]
     Active Substance: ASPIRIN
     Indication: Thrombotic stroke
     Dosage: 75 MG, DAILY
     Dates: start: 202103
  2. FRAGMIN [Suspect]
     Active Substance: DALTEPARIN SODIUM
     Indication: Thrombotic stroke
     Dosage: UNK
     Dates: start: 202103
  3. WARFARIN [Suspect]
     Active Substance: WARFARIN
     Dosage: 2.5 MG, 3-4 TABLETS DAILY
  4. SPIRONOLACTONE [Concomitant]
     Active Substance: SPIRONOLACTONE
  5. BISOPROLOL [Concomitant]
     Active Substance: BISOPROLOL
  6. CANDESARTAN [Concomitant]
     Active Substance: CANDESARTAN
  7. CITALOPRAM [Concomitant]
     Active Substance: CITALOPRAM HYDROBROMIDE
  8. LEVOTHYROXINE SODIUM [Concomitant]
     Active Substance: LEVOTHYROXINE SODIUM
  9. PANTOPRAZOLE [Concomitant]
     Active Substance: PANTOPRAZOLE
  10. FERROGLYCINE SULFATE [Concomitant]
     Active Substance: FERROGLYCINE SULFATE

REACTIONS (1)
  - Cerebral haemorrhage [Recovering/Resolving]

NARRATIVE: CASE EVENT DATE: 20211123
